FAERS Safety Report 6706576-3 (Version None)
Quarter: 2010Q2

REPORT INFORMATION
  Report Type: 
  Country: None (occurrence: None)
  Receive Date: 20100503
  Receipt Date: 20100423
  Transmission Date: 20101027
  Serious: Yes (Other)
  Sender: FDA-Public Use
  Company Number: US-JNJCH-2010010191

PATIENT
  Age: 52 Year
  Sex: Female
  Weight: 49.9 kg

DRUGS (11)
  1. BENADRYL D ALLERGY + SINUS [Suspect]
     Indication: HYPERSENSITIVITY
     Dosage: TEXT:UNKNOWN
     Route: 048
  2. KEPPRA [Concomitant]
     Indication: CONVULSION
     Dosage: TEXT:UNKNOWN
     Route: 065
  3. MYSOLINE [Concomitant]
     Indication: CONVULSION
     Dosage: TEXT:UNKNOWN
     Route: 065
  4. TOPAMAX [Concomitant]
     Indication: CONVULSION
     Dosage: TEXT:UNKNOWN
     Route: 065
  5. LAMICTAL [Concomitant]
     Indication: CONVULSION
     Dosage: TEXT:UNKNOWN
     Route: 065
  6. FOLIC ACID [Concomitant]
     Indication: BLOOD DISORDER
     Dosage: TEXT:UNKNOWN
     Route: 065
  7. PLAQUENIL [Concomitant]
     Indication: SYSTEMIC LUPUS ERYTHEMATOSUS
     Dosage: TEXT:UNKNOWN
     Route: 065
  8. PREDNISONE TAB [Concomitant]
     Indication: STEROID THERAPY
     Dosage: TEXT:UNKNOWN
     Route: 065
  9. HYDROCHLOROTHIAZIDE [Concomitant]
     Indication: BLOOD PRESSURE
     Dosage: TEXT:UNKNOWN
     Route: 065
  10. AZATHIOPRINE [Concomitant]
     Indication: RENAL DISORDER
     Dosage: TEXT:UNKNOWN
     Route: 065
  11. VITAMIN D [Concomitant]
     Indication: BONE DISORDER
     Dosage: TEXT:UNKNOWN
     Route: 065

REACTIONS (3)
  - BLOOD PRESSURE INCREASED [None]
  - CEREBROVASCULAR ACCIDENT [None]
  - MOVEMENT DISORDER [None]
